FAERS Safety Report 7134921-6 (Version None)
Quarter: 2010Q4

REPORT INFORMATION
  Report Type: 
  Country: None (occurrence: None)
  Receive Date: 20101203
  Receipt Date: 20101124
  Transmission Date: 20110411
  Serious: Yes (Other)
  Sender: FDA-Public Use
  Company Number: US-JNJFOC-20100906220

PATIENT
  Sex: Male
  Weight: 36 kg

DRUGS (6)
  1. REMICADE [Suspect]
     Indication: CROHN'S DISEASE
     Route: 042
  2. REMICADE [Suspect]
     Route: 042
  3. REMICADE [Suspect]
     Route: 042
  4. METHOTREXATE [Concomitant]
  5. AZATHIOPRINE [Concomitant]
     Indication: CROHN'S DISEASE
  6. AZATHIOPRINE [Concomitant]

REACTIONS (2)
  - CROHN'S DISEASE [None]
  - CYTOMEGALOVIRUS INFECTION [None]
